FAERS Safety Report 17734793 (Version 1)
Quarter: 2020Q2

REPORT INFORMATION
  Report Type: Spontaneous
  Country: US (occurrence: US)
  Receive Date: 20200501
  Receipt Date: 20200501
  Transmission Date: 20200714
  Serious: Yes (Other)
  Sender: FDA-Public Use
  Company Number: None

PATIENT
  Age: 80 Year
  Sex: Female
  Weight: 52.65 kg

DRUGS (1)
  1. ALENDRONATE [Suspect]
     Active Substance: ALENDRONATE SODIUM
     Indication: OSTEOPOROSIS
     Dosage: ?          QUANTITY:1 TABLET(S);OTHER FREQUENCY:WEEKLY;?
     Route: 048
     Dates: start: 20200208, end: 20200419

REACTIONS (6)
  - Discomfort [None]
  - Swelling face [None]
  - Mouth ulceration [None]
  - Oropharyngeal pain [None]
  - Oral mucosal discolouration [None]
  - Oral pain [None]

NARRATIVE: CASE EVENT DATE: 20200323
